FAERS Safety Report 13384821 (Version 1)
Quarter: 2017Q1

REPORT INFORMATION
  Report Type: Spontaneous
  Country: US (occurrence: US)
  Receive Date: 20170329
  Receipt Date: 20170329
  Transmission Date: 20170429
  Serious: Yes (Other)
  Sender: FDA-Public Use
  Company Number: US-ACTELION-A-NJ2017-151516

PATIENT
  Age: 62 Year
  Sex: Female

DRUGS (11)
  1. LISINOPRIL. [Concomitant]
     Active Substance: LISINOPRIL
     Dosage: 20MG TAB; 2 TABS BY MOUTH DAILY
     Route: 048
     Dates: start: 20160514
  2. OPANA [Concomitant]
     Active Substance: OXYMORPHONE HYDROCHLORIDE
     Dosage: 30MG TAB; 1 TAB BY MOUTH Q12H PRN
     Route: 048
     Dates: start: 20170213
  3. OPSUMIT [Suspect]
     Active Substance: MACITENTAN
     Indication: PULMONARY ARTERIAL HYPERTENSION
     Dosage: 10 MG, QD
     Route: 048
     Dates: start: 20170301, end: 20170315
  4. SPIRONOLACTONE. [Concomitant]
     Active Substance: SPIRONOLACTONE
     Dosage: 25MG TAB; 1 TAB BY MOUTH DAILY
     Route: 048
     Dates: start: 20170221
  5. VENTOLIN [Concomitant]
     Active Substance: ALBUTEROL SULFATE
     Dosage: 90MCG; 2 PUFFS BY MOUTH Q4H PRN
     Route: 048
     Dates: start: 20170122
  6. NORTRIPTYLINE [Concomitant]
     Active Substance: NORTRIPTYLINE
     Dosage: 10MG; 2 CAPS BY MOUTH DAILY QHS
     Route: 048
     Dates: start: 20160914
  7. SILDENAFIL. [Concomitant]
     Active Substance: SILDENAFIL
     Dosage: 20MG TAB; 1 TAB BY MOUTH TID
     Route: 048
     Dates: start: 20170221
  8. AMLODIPINE [Concomitant]
     Active Substance: AMLODIPINE BESYLATE
     Dosage: 5MG TAB; 1 TAB BY MOUTH DAILY
     Route: 048
     Dates: start: 20170214
  9. OLANZAPINE. [Concomitant]
     Active Substance: OLANZAPINE
     Dosage: 5MG TAB; 1 TAB BY MOUTH DAILY QHS
     Route: 048
     Dates: start: 20160322
  10. FUROSEMIDE. [Concomitant]
     Active Substance: FUROSEMIDE
     Dosage: 20MG TAB; 2 TABS BY MOUTH BID
     Route: 048
     Dates: start: 20170127
  11. DEPAKOTE [Concomitant]
     Active Substance: DIVALPROEX SODIUM
     Dosage: 250MG; 1 TAB BY MOUTH BID
     Route: 048
     Dates: start: 20160322

REACTIONS (2)
  - Fatigue [Recovered/Resolved]
  - Asthenia [Recovered/Resolved]

NARRATIVE: CASE EVENT DATE: 20170309
